FAERS Safety Report 15642500 (Version 1)
Quarter: 2018Q4

REPORT INFORMATION
  Report Type: Spontaneous
  Country: GB (occurrence: GB)
  Receive Date: 20181121
  Receipt Date: 20181121
  Transmission Date: 20190205
  Serious: Yes (Hospitalization)
  Sender: FDA-Public Use
  Company Number: GB-TEVA-2018-GB-976848

PATIENT
  Age: 89 Year
  Sex: Male

DRUGS (11)
  1. LANSOPRAZOLE. [Concomitant]
     Active Substance: LANSOPRAZOLE
     Route: 065
     Dates: end: 20180925
  2. CODEINE [Concomitant]
     Active Substance: CODEINE
     Dosage: 25MG/5ML
     Route: 065
  3. PIVMECILLINAM [Concomitant]
     Active Substance: AMDINOCILLIN PIVOXIL
     Route: 065
     Dates: end: 20180926
  4. PARACETAMOL [Concomitant]
     Active Substance: ACETAMINOPHEN
     Dosage: 250MG/5ML
     Route: 065
  5. CLOPIDOGREL [Suspect]
     Active Substance: CLOPIDOGREL BISULFATE
     Dosage: 75 MILLIGRAM DAILY;
     Route: 048
     Dates: end: 20181004
  6. CONOTRANE [Concomitant]
     Route: 065
  7. HYPROMELLOSE [Concomitant]
     Active Substance: HYPROMELLOSES
     Route: 065
  8. RANITIDINE. [Concomitant]
     Active Substance: RANITIDINE
     Dosage: 300 MILLIGRAM DAILY; 75MG/5ML
     Route: 065
     Dates: start: 20180925, end: 20181004
  9. ADCAL-D3 [Concomitant]
     Active Substance: CALCIUM CARBONATE\CHOLECALCIFEROL
     Route: 065
  10. DOCUSATE [Concomitant]
     Active Substance: DOCUSATE
     Dosage: 50MG/5ML
     Route: 065
  11. ZEROCREAM [Concomitant]
     Route: 065

REACTIONS (1)
  - Haematemesis [Recovering/Resolving]

NARRATIVE: CASE EVENT DATE: 20181004
